FAERS Safety Report 9164043 (Version 2)
Quarter: 2013Q1

REPORT INFORMATION
  Report Type: Spontaneous
  Country: NL (occurrence: NL)
  Receive Date: 20130314
  Receipt Date: 20130321
  Transmission Date: 20140127
  Serious: Yes (Death)
  Sender: FDA-Public Use
  Company Number: NL-MERCK-1303NLD005040

PATIENT
  Age: 41 Year
  Sex: Female
  Weight: 62 kg

DRUGS (2)
  1. MARVELON [Suspect]
     Indication: CONTRACEPTION
     Dosage: 1 TIMES PER 1 CYCLICAL, 1DF
     Route: 048
     Dates: start: 199312, end: 19931216
  2. MARVELON [Suspect]
     Indication: MENSTRUATION IRREGULAR

REACTIONS (1)
  - Pulmonary embolism [Fatal]
